FAERS Safety Report 6575184-X (Version None)
Quarter: 2010Q1

REPORT INFORMATION
  Report Type: 
  Country: None (occurrence: None)
  Receive Date: 20100209
  Receipt Date: 20100128
  Transmission Date: 20100710
  Serious: Yes (Other)
  Sender: FDA-Public Use
  Company Number: US-MYLANLABS-2010S1001494

PATIENT
  Age: 18 Year
  Sex: Female

DRUGS (3)
  1. CLARAVIS [Suspect]
     Dates: start: 20090101
  2. ACCUTANE [Suspect]
     Dates: start: 20090101
  3. AMNESTEEM [Suspect]
     Dates: start: 20090101

REACTIONS (1)
  - GASTROINTESTINAL HAEMORRHAGE [None]
